FAERS Safety Report 7191060-6 (Version None)
Quarter: 2010Q4

REPORT INFORMATION
  Report Type: 
  Country: None (occurrence: None)
  Receive Date: 20101207
  Receipt Date: 20101125
  Transmission Date: 20110411
  Serious: Yes (Other)
  Sender: FDA-Public Use
  Company Number: 2010SP061929

PATIENT
  Age: 42 Year
  Sex: Female

DRUGS (4)
  1. IMPLANON [Suspect]
     Indication: CONTRACEPTION
     Dosage: 1 DF SC
     Route: 058
     Dates: start: 20100521
  2. ETONOGESTREL (IMPLANT) [Concomitant]
  3. RADIOPAQUE [Concomitant]
  4. STILNOX [Concomitant]

REACTIONS (2)
  - BREAST CALCIFICATIONS [None]
  - BREAST CANCER IN SITU [None]
